FAERS Safety Report 10058224 (Version 1)
Quarter: 2014Q2

REPORT INFORMATION
  Report Type: Spontaneous
  Country: US (occurrence: US)
  Receive Date: 20140404
  Receipt Date: 20140404
  Transmission Date: 20141212
  Serious: No
  Sender: FDA-Public Use
  Company Number: US-PFIZER INC-2014093469

PATIENT
  Age: 50 Year
  Sex: Male
  Weight: 104.3 kg

DRUGS (2)
  1. LYRICA [Suspect]
     Indication: POST HERPETIC NEURALGIA
     Dosage: UNK, 2X/DAY
     Route: 048
     Dates: start: 201403
  2. TYLENOL [Concomitant]
     Dosage: UNK

REACTIONS (1)
  - Drug ineffective [Unknown]
